FAERS Safety Report 11937951 (Version 1)
Quarter: 2016Q1

REPORT INFORMATION
  Report Type: Spontaneous
  Country: US (occurrence: None)
  Receive Date: 20160120
  Receipt Date: 20160120
  Transmission Date: 20160526
  Serious: Yes (Death)
  Sender: FDA-Public Use
  Company Number: None

PATIENT
  Age: 73 Year
  Sex: Male
  Weight: 90.1 kg

DRUGS (1)
  1. BRENTUXIMAB VEDOTIN [Suspect]
     Active Substance: BRENTUXIMAB VEDOTIN
     Indication: ACUTE GRAFT VERSUS HOST DISEASE
     Dosage: 0.8 MG/KG Q 2WEEKS X4 IV
     Route: 042
     Dates: start: 20151128, end: 20151211

REACTIONS (8)
  - Diarrhoea [None]
  - Pleural effusion [None]
  - Graft versus host disease [None]
  - Atelectasis [None]
  - Fatigue [None]
  - Lethargy [None]
  - Myelodysplastic syndrome [None]
  - Klebsiella bacteraemia [None]

NARRATIVE: CASE EVENT DATE: 20160115
